FAERS Safety Report 17464919 (Version 2)
Quarter: 2020Q3

REPORT INFORMATION
  Report Type: Spontaneous
  Country: US (occurrence: US)
  Receive Date: 20200226
  Receipt Date: 20200824
  Transmission Date: 20201102
  Serious: No
  Sender: FDA-Public Use
  Company Number: US-ROCHE-2394659

PATIENT
  Sex: Female
  Weight: 98.06 kg

DRUGS (13)
  1. ALDACTONE [Concomitant]
     Active Substance: SPIRONOLACTONE
     Dosage: TAKE 1/2 TABLET BY MOUTH EVERY DAY
     Route: 048
     Dates: start: 20191216
  2. MEVACOR [Concomitant]
     Active Substance: LOVASTATIN
     Dosage: TAKE 25 MG BY MOUTH 3 TIMES DAILY AS NEEDED
     Route: 048
     Dates: start: 20191112
  3. ZOFRAN [Concomitant]
     Active Substance: ONDANSETRON HYDROCHLORIDE
     Dosage: TAKE 1 TABLET BY MOUTH EVERY 8 HOURS AS NEEDED FOR NAUSEA
     Route: 048
     Dates: start: 20190417
  4. LABETALOL HCL [Concomitant]
     Active Substance: LABETALOL HYDROCHLORIDE
     Route: 048
  5. ATIVAN [Concomitant]
     Active Substance: LORAZEPAM
     Dosage: TAKE 1 TABLET BY MOUTH DAILY AS NEEDED FOR ANXIETY OR INSOMNIA
     Route: 048
     Dates: start: 20190417
  6. ANTIVERT [Concomitant]
     Active Substance: MECLIZINE HYDROCHLORIDE
     Dosage: 25 MG BY MOTH 3 TIMES DAILY AS NEEDED
     Route: 048
  7. ASPIRINE [Concomitant]
     Active Substance: ASPIRIN
     Route: 048
     Dates: start: 20181102
  8. DEXAMETHASONE. [Concomitant]
     Active Substance: DEXAMETHASONE
     Route: 048
     Dates: start: 20181102
  9. HYDROCHLOROTHIAZIDE. [Concomitant]
     Active Substance: HYDROCHLOROTHIAZIDE
     Route: 048
     Dates: start: 20181102
  10. NORMODYNE [Concomitant]
     Active Substance: LABETALOL HYDROCHLORIDE
     Dosage: TAKE 1200 MG BY MOUTH TWICE A DAILY
     Route: 048
     Dates: start: 20191111
  11. KLOR?CON [Concomitant]
     Active Substance: POTASSIUM CHLORIDE
     Dosage: TAKE 1 TABLET BY MOUTH DAILY
     Route: 048
     Dates: start: 20190114
  12. ALECENSA [Suspect]
     Active Substance: ALECTINIB HYDROCHLORIDE
     Indication: NEOPLASM MALIGNANT
     Dosage: 4 CAPSULES BY MOUTH
     Route: 048
     Dates: start: 20181018
  13. ONDANSETRON HCL [Concomitant]
     Active Substance: ONDANSETRON HYDROCHLORIDE
     Route: 048
     Dates: start: 20181102

REACTIONS (1)
  - Heart rate increased [Unknown]
